FAERS Safety Report 6478111-9 (Version None)
Quarter: 2009Q4

REPORT INFORMATION
  Report Type: 
  Country: None (occurrence: None)
  Receive Date: 20091207
  Receipt Date: 20091202
  Transmission Date: 20100525
  Serious: Yes (Hospitalization)
  Sender: FDA-Public Use
  Company Number: US-B.I. PHARMACEUTICALS,INC./RIDGEFIELD-2009-BP-13979BP

PATIENT
  Sex: Female

DRUGS (11)
  1. SPIRIVA [Suspect]
     Indication: CHRONIC OBSTRUCTIVE PULMONARY DISEASE
     Dosage: 18 MCG
     Route: 055
     Dates: start: 20060101
  2. PLAVIX [Concomitant]
     Indication: CARDIAC DISORDER
  3. ADVAIR DISKUS 100/50 [Concomitant]
     Indication: CHRONIC OBSTRUCTIVE PULMONARY DISEASE
  4. ALBUTEROL [Concomitant]
     Indication: CHRONIC OBSTRUCTIVE PULMONARY DISEASE
  5. SYNTHROID [Concomitant]
     Indication: THYROID DISORDER
  6. AVALIDE [Concomitant]
     Indication: BLOOD PRESSURE INCREASED
  7. NEXIUM [Concomitant]
     Indication: GASTROOESOPHAGEAL REFLUX DISEASE
  8. TOPROL-XL [Concomitant]
     Indication: BLOOD PRESSURE INCREASED
  9. ISORBIDE [Concomitant]
     Indication: CARDIAC DISORDER
  10. ASPIRIN [Concomitant]
     Indication: CARDIAC DISORDER
  11. SIMVASTATIN [Concomitant]
     Indication: BLOOD CHOLESTEROL INCREASED

REACTIONS (6)
  - CHEST PAIN [None]
  - CHILLS [None]
  - CORONARY ARTERY OCCLUSION [None]
  - COUGH [None]
  - LUNG DISORDER [None]
  - LUNG INFECTION [None]
